FAERS Safety Report 24585877 (Version 1)
Quarter: 2024Q4

REPORT INFORMATION
  Report Type: Report from Study
  Country: US (occurrence: US)
  Receive Date: 20241106
  Receipt Date: 20241106
  Transmission Date: 20250114
  Serious: Yes (Other)
  Sender: ALEXION PHARMACEUTICALS
  Company Number: US-ALXN-202410USA027202US

PATIENT

DRUGS (4)
  1. STRENSIQ [Suspect]
     Active Substance: ASFOTASE ALFA
     Dosage: UNK
     Route: 065
  2. STRENSIQ [Suspect]
     Active Substance: ASFOTASE ALFA
     Dosage: UNK
  3. STRENSIQ [Suspect]
     Active Substance: ASFOTASE ALFA
     Dosage: UNK
     Route: 065
  4. STRENSIQ [Suspect]
     Active Substance: ASFOTASE ALFA
     Dosage: UNK

REACTIONS (18)
  - Night sweats [Unknown]
  - Musculoskeletal stiffness [Unknown]
  - Hypokinesia [Unknown]
  - Fatigue [Unknown]
  - Insomnia [Unknown]
  - Polyuria [Unknown]
  - Nocturia [Unknown]
  - Arthralgia [Unknown]
  - Anxiety [Unknown]
  - Sexual dysfunction [Unknown]
  - Blood pressure systolic increased [Unknown]
  - Carbon dioxide decreased [Unknown]
  - Blood thyroid stimulating hormone decreased [Unknown]
  - Tri-iodothyronine free decreased [Unknown]
  - Thyroxine free decreased [Unknown]
  - Hypogonadism [Unknown]
  - Blood glucose increased [Unknown]
  - Protein total decreased [Unknown]
